FAERS Safety Report 7330061-1 (Version None)
Quarter: 2011Q1

REPORT INFORMATION
  Report Type: 
  Country: None (occurrence: None)
  Receive Date: 20110303
  Receipt Date: 20110216
  Transmission Date: 20110831
  Serious: Yes (Hospitalization, Other)
  Sender: FDA-Public Use
  Company Number: US-BAYER-201036383NA

PATIENT
  Sex: Female
  Weight: 157.82 kg

DRUGS (1)
  1. YASMIN [Suspect]
     Indication: PRODUCT USED FOR UNKNOWN INDICATION
     Dosage: UNK
     Route: 048
     Dates: start: 20041201, end: 20050201

REACTIONS (8)
  - OSTEOMYELITIS [None]
  - GROIN PAIN [None]
  - DEEP VEIN THROMBOSIS [None]
  - MOBILITY DECREASED [None]
  - MUSCULAR WEAKNESS [None]
  - ARTHRALGIA [None]
  - ANAEMIA [None]
  - MENTAL DISORDER [None]
